FAERS Safety Report 7328106-8 (Version None)
Quarter: 2011Q1

REPORT INFORMATION
  Report Type: 
  Country: None (occurrence: None)
  Receive Date: 20110303
  Receipt Date: 20110204
  Transmission Date: 20110831
  Serious: No
  Sender: FDA-Public Use
  Company Number: US-B.I. PHARMACEUTICALS,INC./RIDGEFIELD-2011-BP-03644BP

PATIENT
  Age: 64 Year
  Sex: Female

DRUGS (9)
  1. SPIRIVA [Suspect]
     Indication: CHRONIC OBSTRUCTIVE PULMONARY DISEASE
     Dosage: 18 MCG
     Route: 055
     Dates: start: 20080101
  2. ALENDRONATE [Concomitant]
     Indication: BLOOD CHOLESTEROL INCREASED
  3. ADVAIR DISKUS 100/50 [Concomitant]
     Indication: CHRONIC OBSTRUCTIVE PULMONARY DISEASE
  4. NORVASC [Concomitant]
     Indication: HYPERTENSION
     Dates: start: 20110112
  5. RAMIPRIL [Concomitant]
     Indication: HYPERTENSION
     Dates: start: 20101101, end: 20110112
  6. MAGNESIUM OXIDE [Concomitant]
  7. VITAMIN B-12 [Concomitant]
  8. VITAMIN D [Concomitant]
  9. ALEVE [Concomitant]
     Indication: PAIN

REACTIONS (4)
  - DRY MOUTH [None]
  - BACK PAIN [None]
  - CHOKING [None]
  - PAIN IN EXTREMITY [None]
